FAERS Safety Report 9090731 (Version 1)
Quarter: 2013Q1

REPORT INFORMATION
  Report Type: Report from Study
  Country: US (occurrence: US)
  Receive Date: 20130131
  Receipt Date: 20130131
  Transmission Date: 20140127
  Serious: No
  Sender: FDA-Public Use
  Company Number: US-ABBOTT-12P-163-1011522-00

PATIENT
  Age: 35 Year
  Sex: Female

DRUGS (15)
  1. HUMIRA [Suspect]
     Indication: RHEUMATOID ARTHRITIS
     Dates: start: 201202
  2. HUMIRA [Suspect]
     Dates: start: 201205
  3. PLAQUENIL [Concomitant]
     Indication: ARTHRITIS
  4. MOBIC [Concomitant]
     Indication: ARTHRITIS
  5. ARAVA [Concomitant]
     Indication: ARTHRITIS
  6. NEURONTIN [Concomitant]
     Indication: PRODUCT USED FOR UNKNOWN INDICATION
  7. NORVASC [Concomitant]
     Indication: RAYNAUD^S PHENOMENON
  8. LAMICTAL [Concomitant]
     Indication: BIPOLAR DISORDER
  9. CYMBALTA [Concomitant]
     Indication: BIPOLAR DISORDER
  10. PROAIR INHALER [Concomitant]
     Indication: PRODUCT USED FOR UNKNOWN INDICATION
  11. DULERA INHALER [Concomitant]
     Indication: PRODUCT USED FOR UNKNOWN INDICATION
  12. ZYRTEC [Concomitant]
     Indication: PRODUCT USED FOR UNKNOWN INDICATION
  13. SINGULAIR [Concomitant]
     Indication: PRODUCT USED FOR UNKNOWN INDICATION
  14. OMNARIS NASAL SPRAY [Concomitant]
     Indication: PRODUCT USED FOR UNKNOWN INDICATION
  15. NEXIUM [Concomitant]
     Indication: PRODUCT USED FOR UNKNOWN INDICATION

REACTIONS (1)
  - Drug ineffective [Recovering/Resolving]
